FAERS Safety Report 23011694 (Version 2)
Quarter: 2023Q4

REPORT INFORMATION
  Report Type: Spontaneous
  Country: US (occurrence: US)
  Receive Date: 20230929
  Receipt Date: 20231124
  Transmission Date: 20240109
  Serious: No
  Sender: FDA-Public Use
  Company Number: US-Calliditas-2023CAL01284

PATIENT
  Age: 60 Year
  Sex: Male
  Weight: 128.37 kg

DRUGS (1)
  1. TARPEYO [Suspect]
     Active Substance: BUDESONIDE
     Indication: IgA nephropathy
     Dosage: 16MG (4MG CAPSULES) ONCE DAILY
     Route: 048
     Dates: start: 20230907, end: 20231113

REACTIONS (5)
  - Urine output increased [Unknown]
  - Proteinuria [Unknown]
  - Fluid retention [Unknown]
  - Panic attack [Unknown]
  - Weight increased [Unknown]
